FAERS Safety Report 4702514-3 (Version None)
Quarter: 2005Q2

REPORT INFORMATION
  Report Type: 
  Country: None (occurrence: None)
  Receive Date: 20050629
  Receipt Date: 20050607
  Transmission Date: 20051028
  Serious: Yes (Other)
  Sender: FDA-Public Use
  Company Number: JP-JNJFOC-20050606958

PATIENT
  Age: 20 Year
  Sex: Male

DRUGS (14)
  1. REMICADE [Suspect]
     Indication: CROHN'S DISEASE
     Route: 042
  2. AMPHOTERICIN B [Concomitant]
  3. CEFAMEZIN ALPHA [Concomitant]
  4. CEFMETAZON [Concomitant]
  5. ELENTAL [Concomitant]
  6. ELENTAL [Concomitant]
  7. LAC B [Concomitant]
  8. MEFENAMIC ACID [Concomitant]
  9. MESALAMINE [Concomitant]
  10. PL [Concomitant]
  11. PREDNISOLONE [Concomitant]
  12. PREDNISOLONE ACETATE [Concomitant]
  13. VALPROATE SODIUM [Concomitant]
  14. TARIVID [Concomitant]

REACTIONS (3)
  - CONVULSION [None]
  - CYSTITIS [None]
  - LOSS OF CONSCIOUSNESS [None]
